FAERS Safety Report 6806233-9 (Version None)
Quarter: 2010Q2

REPORT INFORMATION
  Report Type: 
  Country: None (occurrence: None)
  Receive Date: 20100629
  Receipt Date: 20080127
  Transmission Date: 20101027
  Serious: No
  Sender: FDA-Public Use
  Company Number: US-PFIZER INC-2008009887

PATIENT
  Sex: Male
  Weight: 93.2 kg

DRUGS (1)
  1. VIAGRA [Suspect]
     Dates: start: 20080127, end: 20080127

REACTIONS (5)
  - ERYTHEMA [None]
  - MEDICATION ERROR [None]
  - PENILE PAIN [None]
  - PENILE SWELLING [None]
  - PENIS DISORDER [None]
